FAERS Safety Report 11430126 (Version 1)
Quarter: 2015Q3

REPORT INFORMATION
  Report Type: Spontaneous
  Country: US (occurrence: US)
  Receive Date: 20150828
  Receipt Date: 20150828
  Transmission Date: 20151125
  Serious: No
  Sender: FDA-Public Use
  Company Number: US-ROCHE-1201156

PATIENT
  Age: 53 Year
  Sex: Male
  Weight: 107.14 kg

DRUGS (6)
  1. TELAPREVIR [Suspect]
     Active Substance: TELAPREVIR
     Indication: CHRONIC HEPATITIS C
     Route: 048
     Dates: start: 20130215, end: 201303
  2. OMEPRAZOLE. [Concomitant]
     Active Substance: OMEPRAZOLE
  3. ACYCLOVIR. [Concomitant]
     Active Substance: ACYCLOVIR
  4. PEGASYS [Suspect]
     Active Substance: PEGINTERFERON ALFA-2A
     Indication: CHRONIC HEPATITIS C
     Route: 058
     Dates: start: 20130215, end: 201303
  5. RIBAVIRIN. [Suspect]
     Active Substance: RIBAVIRIN
     Indication: CHRONIC HEPATITIS C
     Route: 048
     Dates: start: 20130215, end: 201303
  6. ZOFRAN [Concomitant]
     Active Substance: ONDANSETRON HYDROCHLORIDE
     Route: 065

REACTIONS (8)
  - Anorectal discomfort [Recovering/Resolving]
  - Vomiting [Recovered/Resolved]
  - Diarrhoea [Recovered/Resolved]
  - Gastritis [Unknown]
  - Abdominal discomfort [Recovered/Resolved]
  - Nausea [Recovered/Resolved]
  - Nasal discomfort [Unknown]
  - Weight decreased [Unknown]

NARRATIVE: CASE EVENT DATE: 20130312
